FAERS Safety Report 8148195-0 (Version None)
Quarter: 2012Q1

REPORT INFORMATION
  Report Type: 
  Country: None (occurrence: None)
  Receive Date: 20120218
  Receipt Date: 20110502
  Transmission Date: 20120608
  Serious: No
  Sender: FDA-Public Use
  Company Number: US-ALLERGAN-1106028US

PATIENT
  Sex: Female

DRUGS (1)
  1. BOTULINUM TOXIN TYPE A [Suspect]
     Indication: MIGRAINE
     Dosage: 150 UNITS, SINGLE
     Route: 030
     Dates: start: 20110429, end: 20110429

REACTIONS (5)
  - NASAL CONGESTION [None]
  - BACK PAIN [None]
  - CHILLS [None]
  - MUSCULOSKELETAL PAIN [None]
  - NECK PAIN [None]
